FAERS Safety Report 9485641 (Version 3)
Quarter: 2013Q4

REPORT INFORMATION
  Report Type: Spontaneous
  Country: US (occurrence: US)
  Receive Date: 20130829
  Receipt Date: 20131216
  Transmission Date: 20140711
  Serious: Yes (Other)
  Sender: FDA-Public Use
  Company Number: US-BRISTOL-MYERS SQUIBB COMPANY-19200435

PATIENT
  Age: 53 Year
  Sex: Male
  Weight: 83.9 kg

DRUGS (7)
  1. BYDUREON [Suspect]
     Indication: TYPE 2 DIABETES MELLITUS
     Route: 058
     Dates: start: 20130813
  2. ACTOS [Concomitant]
     Route: 048
  3. CRESTOR [Concomitant]
     Route: 048
  4. NESINA [Concomitant]
     Route: 048
  5. SODIUM BICARBONATE [Concomitant]
     Route: 048
  6. AMLODIPINE [Concomitant]
     Route: 048
  7. LISINOPRIL [Concomitant]

REACTIONS (8)
  - Palpitations [Recovering/Resolving]
  - Dyspnoea [Recovering/Resolving]
  - Hypertension [Recovering/Resolving]
  - Asthenia [Recovering/Resolving]
  - Vomiting [Unknown]
  - Diarrhoea [Unknown]
  - Muscle spasms [Unknown]
  - Weight decreased [Unknown]
